FAERS Safety Report 10336282 (Version 1)
Quarter: 2014Q3

REPORT INFORMATION
  Report Type: Spontaneous
  Country: US (occurrence: US)
  Receive Date: 20140723
  Receipt Date: 20140723
  Transmission Date: 20150326
  Serious: No
  Sender: FDA-Public Use
  Company Number: US-BRISTOL-MYERS SQUIBB COMPANY-20000600

PATIENT
  Age: 55 Year
  Sex: Female
  Weight: 67.12 kg

DRUGS (3)
  1. DIGOXIN. [Concomitant]
     Active Substance: DIGOXIN
  2. COUMADIN [Suspect]
     Active Substance: WARFARIN SODIUM
     Dosage: 1 DF: 5 OR 2.5 MG; INCREASED TO 10 MG
  3. CARTIA XT [Concomitant]
     Active Substance: DILTIAZEM HYDROCHLORIDE

REACTIONS (1)
  - International normalised ratio decreased [Unknown]
